FAERS Safety Report 20299370 (Version 1)
Quarter: 2022Q1

REPORT INFORMATION
  Report Type: Spontaneous
  Country: US (occurrence: None)
  Receive Date: 20220104
  Receipt Date: 20220104
  Transmission Date: 20220423
  Serious: Yes (Life-Threatening)
  Sender: FDA-Public Use
  Company Number: None

PATIENT
  Age: 62 Year
  Sex: Female
  Weight: 51 kg

DRUGS (1)
  1. PACLITAXEL [Suspect]
     Active Substance: PACLITAXEL
     Indication: Non-small cell lung cancer metastatic
     Dosage: FREQUENCY : ONCE;?
     Route: 042

REACTIONS (3)
  - Cough [None]
  - Unresponsive to stimuli [None]
  - Skin discolouration [None]

NARRATIVE: CASE EVENT DATE: 20211228
